FAERS Safety Report 5998754-6 (Version None)
Quarter: 2008Q4

REPORT INFORMATION
  Report Type: 
  Country: None (occurrence: None)
  Receive Date: 20081213
  Receipt Date: 20080718
  Transmission Date: 20090506
  Serious: No
  Sender: FDA-Public Use
  Company Number: US-AMGEN-KDL295849

PATIENT
  Sex: Female

DRUGS (3)
  1. ENBREL [Suspect]
     Indication: RHEUMATOID ARTHRITIS
     Route: 058
     Dates: start: 20080612
  2. ENBREL [Suspect]
     Indication: SYSTEMIC LUPUS ERYTHEMATOSUS
  3. METHOTREXATE [Concomitant]

REACTIONS (5)
  - DARK CIRCLES UNDER EYES [None]
  - DYSPHONIA [None]
  - ERYTHEMA [None]
  - FATIGUE [None]
  - LOCAL SWELLING [None]
